FAERS Safety Report 5339255-8 (Version None)
Quarter: 2007Q2

REPORT INFORMATION
  Report Type: 
  Country: None (occurrence: None)
  Receive Date: 20070322
  Receipt Date: 20070126
  Transmission Date: 20071010
  Serious: Yes (Hospitalization, Other)
  Sender: FDA-Public Use
  Company Number: 200614403BCC

PATIENT
  Age: 66 Year
  Sex: Female
  Weight: 76.2043 kg

DRUGS (11)
  1. ALEVE (CAPLET) [Suspect]
     Indication: ARTHRITIS
     Dosage: 440 MG, ONCE, ORAL
     Route: 048
     Dates: start: 20061014
  2. ALEVE (CAPLET) [Suspect]
     Indication: HEADACHE
     Dosage: 440 MG, ONCE, ORAL
     Route: 048
     Dates: start: 20061014
  3. EFFEXOR XR [Concomitant]
  4. CALCIUM WITH VITAMIN D [Concomitant]
  5. CELEBREX [Concomitant]
  6. MULTI-VITAMIN [Concomitant]
  7. ZANTAC [Concomitant]
  8. NEXIUM [Concomitant]
  9. VITAMIN E [Concomitant]
  10. GENERIC ASPIRIN 81 MG [Concomitant]
  11. FOSAMAX [Concomitant]

REACTIONS (5)
  - DRUG HYPERSENSITIVITY [None]
  - PRURITUS [None]
  - RASH GENERALISED [None]
  - THROAT TIGHTNESS [None]
  - URTICARIA [None]
